FAERS Safety Report 10980025 (Version 2)
Quarter: 2015Q2

REPORT INFORMATION
  Report Type: Spontaneous
  Country: US (occurrence: US)
  Receive Date: 20150402
  Receipt Date: 20150525
  Transmission Date: 20150821
  Serious: No
  Sender: FDA-Public Use
  Company Number: US-JNJFOC-20131002791

PATIENT
  Age: 29 Year
  Sex: Male
  Weight: 104.33 kg

DRUGS (3)
  1. IMODIUM MULTI-SYMPTOM RELIEF [Suspect]
     Active Substance: DIMETHICONE\LOPERAMIDE HYDROCHLORIDE
     Indication: DIARRHOEA
     Route: 048
  2. IMODIUM MULTI-SYMPTOM RELIEF [Suspect]
     Active Substance: DIMETHICONE\LOPERAMIDE HYDROCHLORIDE
     Route: 048
  3. CLARINEX [Concomitant]
     Active Substance: DESLORATADINE
     Indication: SEASONAL ALLERGY
     Dosage: SINCE 10 YEARS
     Route: 065

REACTIONS (5)
  - Expired product administered [Unknown]
  - Pain [Recovered/Resolved]
  - Product difficult to swallow [Unknown]
  - Discomfort [Recovered/Resolved]
  - Product difficult to swallow [Recovered/Resolved]
